FAERS Safety Report 10400991 (Version 1)
Quarter: 2014Q3

REPORT INFORMATION
  Report Type: Spontaneous
  Country: JP (occurrence: JP)
  Receive Date: 20140821
  Receipt Date: 20140821
  Transmission Date: 20150326
  Serious: Yes (Hospitalization, Other)
  Sender: FDA-Public Use
  Company Number: PHHY2012JP132958

PATIENT
  Age: 73 Year
  Sex: Male

DRUGS (2)
  1. SPRYCEL [Suspect]
     Active Substance: DASATINIB
     Dosage: 50 MG, UNK
     Dates: start: 200905
  2. GLIVEC [Suspect]
     Active Substance: IMATINIB MESYLATE

REACTIONS (3)
  - Diarrhoea [Unknown]
  - Cardiac failure [Unknown]
  - Diabetic nephropathy [Unknown]
